FAERS Safety Report 5387160-3 (Version None)
Quarter: 2007Q3

REPORT INFORMATION
  Report Type: 
  Country: None (occurrence: None)
  Receive Date: 20070711
  Receipt Date: 20070628
  Transmission Date: 20080115
  Serious: No
  Sender: FDA-Public Use
  Company Number: 032-106

PATIENT
  Sex: 0

DRUGS (2)
  1. TEVETEN [Suspect]
     Dosage: 1800 MG ONCE PO
     Route: 048
  2. WELCHOL [Concomitant]

REACTIONS (1)
  - WRONG DRUG ADMINISTERED [None]
